FAERS Safety Report 7772129-1 (Version None)
Quarter: 2011Q3

REPORT INFORMATION
  Report Type: 
  Country: None (occurrence: None)
  Receive Date: 20110922
  Receipt Date: 20100728
  Transmission Date: 20111222
  Serious: No
  Sender: FDA-Public Use
  Company Number: US-ASTRAZENECA-2010SE35452

PATIENT
  Age: 8930 Day
  Sex: Female

DRUGS (4)
  1. SLEEPING PILL [Concomitant]
  2. ZOLOFT [Concomitant]
  3. VISTARIL [Concomitant]
  4. SEROQUEL XR [Suspect]
     Indication: BIPOLAR DISORDER
     Route: 048
     Dates: start: 20100716, end: 20100726

REACTIONS (5)
  - FATIGUE [None]
  - DRUG DOSE OMISSION [None]
  - ASTHENIA [None]
  - ABDOMINAL PAIN UPPER [None]
  - VISION BLURRED [None]
